FAERS Safety Report 5412546-8 (Version None)
Quarter: 2007Q3

REPORT INFORMATION
  Report Type: 
  Country: None (occurrence: None)
  Receive Date: 20070813
  Receipt Date: 20070808
  Transmission Date: 20080115
  Serious: Yes (Death, Hospitalization)
  Sender: FDA-Public Use
  Company Number: B0482864A

PATIENT
  Sex: Female

DRUGS (3)
  1. CARVEDILOL [Suspect]
     Route: 065
     Dates: start: 20030615
  2. MULTIPLE DRUGS [Concomitant]
     Route: 065
  3. ANTIBIOTIC [Concomitant]
     Indication: SEPSIS

REACTIONS (2)
  - RASH [None]
  - SEPSIS [None]
